FAERS Safety Report 8202174-3 (Version None)
Quarter: 2012Q1

REPORT INFORMATION
  Report Type: 
  Country: None (occurrence: None)
  Receive Date: 20120312
  Receipt Date: 20120302
  Transmission Date: 20120608
  Serious: Yes (Other)
  Sender: FDA-Public Use
  Company Number: US-BAYER-2011-103447

PATIENT
  Age: 32 Year
  Sex: Female

DRUGS (5)
  1. METFORMIN HCL [Concomitant]
     Indication: INSULIN RESISTANCE
     Dosage: 850 MG, BID
  2. YASMIN [Suspect]
     Dosage: UNK
     Dates: start: 20060101, end: 20080101
  3. FEXOFENADINE HYDROCHLORIDE [Concomitant]
     Dosage: 180 MG, UNK
  4. SINGULAIR [Concomitant]
     Dosage: 10 MG,ONE IN THE EVENING
  5. IBUPROFEN [Concomitant]
     Dosage: 800 MG EVERY 8 HOURS AS NEEDED
     Dates: end: 20091012

REACTIONS (5)
  - EMOTIONAL DISTRESS [None]
  - CHOLECYSTITIS CHRONIC [None]
  - INJURY [None]
  - PAIN [None]
  - GALLBLADDER DISORDER [None]
